FAERS Safety Report 24762978 (Version 1)
Quarter: 2024Q4

REPORT INFORMATION
  Report Type: Spontaneous
  Country: JP (occurrence: JP)
  Receive Date: 20241222
  Receipt Date: 20241222
  Transmission Date: 20250114
  Serious: Yes (Hospitalization, Other)
  Sender: JOHNSON AND JOHNSON
  Company Number: JP-NShinyaku-EVA20240855201001307081

PATIENT
  Age: 70 Year
  Sex: Female

DRUGS (31)
  1. UPTRAVI [Suspect]
     Active Substance: SELEXIPAG
     Indication: Pulmonary arterial hypertension
     Route: 048
  2. UPTRAVI [Suspect]
     Active Substance: SELEXIPAG
     Route: 048
  3. OPSUMIT [Suspect]
     Active Substance: MACITENTAN
     Indication: Pulmonary arterial hypertension
     Route: 048
  4. OPSUMIT [Suspect]
     Active Substance: MACITENTAN
     Route: 048
  5. OPSUMIT [Suspect]
     Active Substance: MACITENTAN
     Route: 048
  6. OPSUMIT [Suspect]
     Active Substance: MACITENTAN
     Route: 048
  7. ADCIRCA [Suspect]
     Active Substance: TADALAFIL
     Indication: Pulmonary arterial hypertension
     Route: 048
  8. ADCIRCA [Suspect]
     Active Substance: TADALAFIL
     Route: 048
  9. ADCIRCA [Suspect]
     Active Substance: TADALAFIL
     Route: 048
  10. NEXIUM [Concomitant]
     Active Substance: ESOMEPRAZOLE MAGNESIUM
     Indication: Abdominal discomfort
     Route: 048
  11. NEXIUM [Concomitant]
     Active Substance: ESOMEPRAZOLE MAGNESIUM
     Route: 048
  12. FUROSEMIDE [Concomitant]
     Active Substance: FUROSEMIDE
     Route: 048
  13. FUROSEMIDE [Concomitant]
     Active Substance: FUROSEMIDE
     Route: 048
  14. MIYA-BM [Concomitant]
     Active Substance: CLOSTRIDIUM BUTYRICUM SPORES STRAIN M-55
     Route: 048
  15. MIYA-BM [Concomitant]
     Active Substance: CLOSTRIDIUM BUTYRICUM SPORES STRAIN M-55
     Route: 048
  16. SAMSCA [Concomitant]
     Active Substance: TOLVAPTAN
     Route: 048
  17. SARPOGRELATE HYDROCHLORIDE [Concomitant]
     Active Substance: SARPOGRELATE HYDROCHLORIDE
     Route: 048
  18. SPIRONOLACTONE [Concomitant]
     Active Substance: SPIRONOLACTONE
     Route: 048
  19. SODIUM FERROUS CITRATE [Concomitant]
     Active Substance: SODIUM FERROUS CITRATE
     Route: 048
  20. FOSAMAC 35MG [Concomitant]
     Route: 048
  21. ELDECALCITOL [Concomitant]
     Active Substance: ELDECALCITOL
     Route: 048
  22. SULFAMETHOXAZOLE\TRIMETHOPRIM [Concomitant]
     Active Substance: SULFAMETHOXAZOLE\TRIMETHOPRIM
     Dosage: UNKNOWN (1/4 OF DAIPHEN (SULFAMETHOXAZOLE/TRIMETHOPRIM))
     Route: 048
  23. ASPIRIN [Concomitant]
     Active Substance: ASPIRIN
     Route: 048
  24. PREDNISOLONE [Concomitant]
     Active Substance: PREDNISOLONE
     Route: 048
  25. FEXOFENADINE HYDROCHLORIDE [Concomitant]
     Active Substance: FEXOFENADINE HYDROCHLORIDE
     Route: 048
  26. LEVOTHYROXINE [Concomitant]
     Active Substance: LEVOTHYROXINE
     Route: 048
  27. POLAPREZINC [Concomitant]
     Active Substance: POLAPREZINC
     Route: 048
  28. MEMANTINE HYDROCHLORIDE [Concomitant]
     Active Substance: MEMANTINE HYDROCHLORIDE
     Indication: Neuropsychological symptoms
     Route: 048
  29. BLONANSERIN [Concomitant]
     Active Substance: BLONANSERIN
     Route: 048
  30. BLONANSERIN [Concomitant]
     Active Substance: BLONANSERIN
     Route: 048
  31. VALPROATE SODIUM [Concomitant]
     Active Substance: VALPROATE SODIUM
     Route: 048

REACTIONS (9)
  - Delusional disorder, unspecified type [Unknown]
  - Schizophrenia [Unknown]
  - Dementia of the Alzheimer^s type, with delusions [Unknown]
  - Large intestine polyp [Unknown]
  - Cardiac failure [Unknown]
  - Neuropsychological symptoms [Unknown]
  - Abdominal discomfort [Unknown]
  - Dizziness [Unknown]
  - Gastrointestinal hypomotility [Unknown]
